FAERS Safety Report 14577639 (Version 2)
Quarter: 2018Q1

REPORT INFORMATION
  Report Type: Report from Study
  Country: CA (occurrence: CA)
  Receive Date: 20180227
  Receipt Date: 20180313
  Transmission Date: 20180509
  Serious: Yes (Hospitalization, Other)
  Sender: FDA-Public Use
  Company Number: CA-GLAXOSMITHKLINE-CA2018GSK006817

PATIENT
  Age: 81 Year
  Sex: Female

DRUGS (5)
  1. MEPOLIZUMAB [Suspect]
     Active Substance: MEPOLIZUMAB
     Indication: ASTHMA
     Dosage: 100 MG, Z
     Route: 042
     Dates: start: 20171220
  2. SYMBICORT [Suspect]
     Active Substance: BUDESONIDE\FORMOTEROL FUMARATE DIHYDRATE
     Indication: PRODUCT USED FOR UNKNOWN INDICATION
     Dosage: 4 DF, BID
  3. VENTOLIN [Suspect]
     Active Substance: ALBUTEROL SULFATE
     Indication: PRODUCT USED FOR UNKNOWN INDICATION
     Dosage: 4 DF, QID
  4. SPIRIVA [Suspect]
     Active Substance: TIOTROPIUM BROMIDE MONOHYDRATE
     Indication: PRODUCT USED FOR UNKNOWN INDICATION
     Dosage: 1 DF(CAPSULE), QD
  5. ADVAIR HFA [Suspect]
     Active Substance: FLUTICASONE PROPIONATE\SALMETEROL XINAFOATE
     Indication: PRODUCT USED FOR UNKNOWN INDICATION
     Dosage: UNK

REACTIONS (17)
  - Asthma [Unknown]
  - Fatigue [Unknown]
  - Malaise [Unknown]
  - Decreased activity [Unknown]
  - Wheezing [Unknown]
  - Bradycardia [Unknown]
  - Pneumonia [Unknown]
  - Dyspnoea [Unknown]
  - Influenza like illness [Unknown]
  - Diarrhoea [Unknown]
  - Headache [Unknown]
  - Sleep disorder due to a general medical condition [Unknown]
  - Vomiting [Unknown]
  - Productive cough [Unknown]
  - Cardiac disorder [Unknown]
  - Sputum discoloured [Unknown]
  - Therapy cessation [Unknown]

NARRATIVE: CASE EVENT DATE: 201712
